FAERS Safety Report 8828202 (Version 1)
Quarter: 2012Q4

REPORT INFORMATION
  Report Type: 
  Country: US (occurrence: US)
  Receive Date: 20121005
  Receipt Date: 20121005
  Transmission Date: 20130627
  Serious: No
  Sender: FDA-Public Use
  Company Number: US-PFIZER INC-2012243251

PATIENT
  Sex: Female

DRUGS (1)
  1. GENOTROPIN [Suspect]
     Dosage: 1.2 mg, UNK

REACTIONS (3)
  - Headache [Unknown]
  - Arthralgia [Unknown]
  - Pain in extremity [Unknown]
